FAERS Safety Report 10823530 (Version 1)
Quarter: 2015Q1

REPORT INFORMATION
  Report Type: Spontaneous
  Country: US (occurrence: None)
  Receive Date: 20150218
  Receipt Date: 20150218
  Transmission Date: 20150721
  Serious: Yes (Other)
  Sender: FDA-Public Use
  Company Number: None

PATIENT
  Age: 11 Year
  Sex: Male
  Weight: 41.73 kg

DRUGS (1)
  1. GARDASIL [Suspect]
     Active Substance: HUMAN PAPILLOMAVIRUS QUADRIVALENT (TYPES 6, 11, 16, AND 18) VACCINE, RECOMBINANT

REACTIONS (16)
  - Hypoaesthesia [None]
  - Chills [None]
  - Abdominal pain upper [None]
  - Staring [None]
  - Paraesthesia [None]
  - Loss of consciousness [None]
  - Tonic clonic movements [None]
  - Vomiting [None]
  - Pyrexia [None]
  - Oropharyngeal pain [None]
  - Rash [None]
  - Eyelid oedema [None]
  - Malaise [None]
  - Nausea [None]
  - Fatigue [None]
  - Diarrhoea [None]

NARRATIVE: CASE EVENT DATE: 20150123
